FAERS Safety Report 9362945 (Version 2)
Quarter: 2013Q2

REPORT INFORMATION
  Report Type: Report from Study
  Country: US (occurrence: US)
  Receive Date: 20130624
  Receipt Date: 20130624
  Transmission Date: 20140414
  Serious: Yes (Hospitalization)
  Sender: FDA-Public Use
  Company Number: US-ROCHE-1239630

PATIENT
  Age: 36 Year
  Sex: Female
  Weight: 83.99 kg

DRUGS (4)
  1. ZELBORAF [Suspect]
     Indication: METASTATIC MALIGNANT MELANOMA
     Route: 048
     Dates: start: 20130430, end: 20130615
  2. INDERAL [Concomitant]
     Indication: TACHYCARDIA
     Dosage: QID AS REQUIRED
     Route: 048
     Dates: start: 20130605
  3. SYNTHROID [Concomitant]
     Indication: HYPOTHYROIDISM
     Route: 048
     Dates: start: 20130404
  4. PROMETHAZINE [Concomitant]
     Indication: NAUSEA
     Dosage: Q4 AS REQUIRED
     Route: 048
     Dates: start: 20130605

REACTIONS (3)
  - Feeling abnormal [Unknown]
  - Drug ineffective [Unknown]
  - Disease progression [Not Recovered/Not Resolved]
